FAERS Safety Report 4716555-3 (Version None)
Quarter: 2005Q3

REPORT INFORMATION
  Report Type: 
  Country: None (occurrence: None)
  Receive Date: 20050718
  Receipt Date: 20050712
  Transmission Date: 20060218
  Serious: Yes (Death)
  Sender: FDA-Public Use
  Company Number: 05-06-1039

PATIENT
  Age: 63 Year
  Sex: Female

DRUGS (11)
  1. CLOZAPINE [Suspect]
     Indication: SCHIZOAFFECTIVE DISORDER
     Dosage: 62.5-112.5MG ORAL
     Route: 048
     Dates: start: 20021101, end: 20050501
  2. MULTIPLE VITAMINS QD [Concomitant]
  3. INSULIN [Concomitant]
  4. ASPIRIN [Concomitant]
  5. COGENTIN [Concomitant]
  6. WELLBUTRIN [Concomitant]
  7. PROLIXIN [Concomitant]
  8. ISOSORBIDE [Concomitant]
  9. LISINOPRIL [Concomitant]
  10. SENNA TABLETS HS [Concomitant]
  11. RESTORIL [Concomitant]

REACTIONS (3)
  - ARRHYTHMIA [None]
  - CARDIO-RESPIRATORY ARREST [None]
  - SUDDEN CARDIAC DEATH [None]
